FAERS Safety Report 5197887-4 (Version None)
Quarter: 2006Q4

REPORT INFORMATION
  Report Type: 
  Country: None (occurrence: None)
  Receive Date: 20061228
  Receipt Date: 20061219
  Transmission Date: 20070319
  Serious: Yes (Life-Threatening, Hospitalization)
  Sender: FDA-Public Use
  Company Number: 163-21880-06090523

PATIENT
  Age: 62 Year
  Sex: Female

DRUGS (7)
  1. REVLIMID [Suspect]
     Indication: MULTIPLE MYELOMA
     Dosage: SEE IMAGE
     Route: 048
     Dates: start: 20060802
  2. ARANESP [Concomitant]
  3. ZOMETA [Concomitant]
  4. DECADRON [Concomitant]
  5. PROTONIX [Concomitant]
  6. NEURONTIN [Concomitant]
  7. AMPICILLIN [Concomitant]

REACTIONS (8)
  - COMA [None]
  - CONFUSIONAL STATE [None]
  - FALL [None]
  - FATIGUE [None]
  - GASTROOESOPHAGEAL REFLUX DISEASE [None]
  - LEUKOPENIA [None]
  - MENINGITIS [None]
  - THROMBOCYTOPENIA [None]
